FAERS Safety Report 19947892 (Version 1)
Quarter: 2021Q4

REPORT INFORMATION
  Report Type: Report from Study
  Country: US (occurrence: US)
  Receive Date: 20211012
  Receipt Date: 20211012
  Transmission Date: 20220303
  Serious: No
  Sender: FDA-Public Use
  Company Number: US-KYOWAKIRIN-2021BKK016770

PATIENT

DRUGS (1)
  1. CRYSVITA [Suspect]
     Active Substance: BUROSUMAB-TWZA
     Indication: Hypophosphataemic osteomalacia
     Dosage: 0.5 UNK, 1X/MONTH
     Route: 058
     Dates: start: 20200804

REACTIONS (1)
  - Back pain [Unknown]
